FAERS Safety Report 5209222-3 (Version None)
Quarter: 2007Q1

REPORT INFORMATION
  Report Type: 
  Country: None (occurrence: None)
  Receive Date: 20070116
  Receipt Date: 20070108
  Transmission Date: 20070707
  Serious: Yes (Hospitalization)
  Sender: FDA-Public Use
  Company Number: BR-ROCHE-477756

PATIENT
  Age: 56 Year
  Sex: Female
  Weight: 60 kg

DRUGS (4)
  1. FUZEON [Suspect]
     Indication: HIV INFECTION
     Dosage: TAKEN IRREGULARLY.
     Route: 058
     Dates: start: 20060815, end: 20061115
  2. TENOFOVIR [Concomitant]
     Indication: HIV INFECTION
     Dosage: DURING THE PATIENT'S HOSPITALISATION, THE THERAPY WAS INTERRUPTED, BUT THEN RESTARTED AT A LOWER DO+
     Route: 048
  3. LAMIVUDINE [Concomitant]
     Indication: HIV INFECTION
     Dosage: DURING THE PATIENT'S HOSPITALISATION, THE THERAPY WAS INTERRUPTED, BUT THEN RESTARTED.
     Route: 048
  4. EFAVIRENZ [Concomitant]
     Indication: HIV INFECTION
     Route: 048
     Dates: end: 20061215

REACTIONS (2)
  - HEPATIC FAILURE [None]
  - RENAL FAILURE [None]
